FAERS Safety Report 20149860 (Version 1)
Quarter: 2021Q4

REPORT INFORMATION
  Report Type: Spontaneous
  Country: GB (occurrence: GB)
  Receive Date: 20211206
  Receipt Date: 20211206
  Transmission Date: 20220303
  Serious: Yes (Other)
  Sender: FDA-Public Use
  Company Number: None

PATIENT
  Age: 66 Year
  Sex: Female
  Weight: 92 kg

DRUGS (8)
  1. RYBELSUS [Suspect]
     Active Substance: SEMAGLUTIDE
     Indication: Product used for unknown indication
     Dosage: 7 MG, QD
     Route: 065
     Dates: start: 20211012, end: 20211123
  2. AMLODIPINE [Concomitant]
     Active Substance: AMLODIPINE BESYLATE
     Indication: Hypertension
     Dosage: 1 TAB, QD
     Dates: start: 20210726
  3. ASPIRIN [Concomitant]
     Active Substance: ASPIRIN
     Dosage: 1 TAB, QD
     Dates: start: 20210726
  4. BISOPROLOL [Concomitant]
     Active Substance: BISOPROLOL
     Dosage: 1 TAB QD
     Dates: start: 20210726
  5. LISINOPRIL [Concomitant]
     Active Substance: LISINOPRIL
     Dosage: 1 TAB QD
     Dates: start: 20210726
  6. ROSUVASTATIN [Concomitant]
     Active Substance: ROSUVASTATIN
     Dosage: 1 TAB QD (AT NIGHT)
     Dates: start: 20210726
  7. SEMAGLUTIDE [Concomitant]
     Active Substance: SEMAGLUTIDE
     Dosage: 1 TAB QD
     Dates: start: 20210907, end: 20211007
  8. METFORMIN HYDROCHLORIDE [Concomitant]
     Active Substance: METFORMIN HYDROCHLORIDE
     Dosage: 2 TAB BID
     Dates: start: 20210726

REACTIONS (2)
  - Asthenia [Unknown]
  - Diarrhoea [Recovering/Resolving]

NARRATIVE: CASE EVENT DATE: 20211101
